FAERS Safety Report 18589764 (Version 1)
Quarter: 2020Q4

REPORT INFORMATION
  Report Type: Other
  Country: BG (occurrence: BG)
  Receive Date: 20201208
  Receipt Date: 20201208
  Transmission Date: 20210114
  Serious: No
  Sender: FDA-Public Use
  Company Number: BG-ROCHE-2709197

PATIENT
  Age: 53 Year
  Sex: Male
  Weight: 82 kg

DRUGS (12)
  1. OCRELIZUMAB. [Suspect]
     Active Substance: OCRELIZUMAB
     Route: 042
     Dates: start: 20200130, end: 20200130
  2. CALMABEN [Concomitant]
     Dosage: ONCE BEFORE?INFUSION
     Route: 048
     Dates: start: 20200130, end: 20200130
  3. OCRELIZUMAB. [Suspect]
     Active Substance: OCRELIZUMAB
     Indication: MULTIPLE SCLEROSIS
     Route: 042
     Dates: start: 20200116, end: 20200116
  4. OCRELIZUMAB. [Suspect]
     Active Substance: OCRELIZUMAB
     Route: 042
     Dates: start: 20200717, end: 20200717
  5. PARACETAMOL [Concomitant]
     Active Substance: ACETAMINOPHEN
     Route: 048
     Dates: start: 20200130, end: 20200130
  6. CALMABEN [Concomitant]
     Indication: PREMEDICATION
     Dosage: ONCE BEFORE?INFUSION
     Route: 048
     Dates: start: 20200116, end: 20200116
  7. PARACETAMOL [Concomitant]
     Active Substance: ACETAMINOPHEN
     Indication: PREMEDICATION
     Route: 048
     Dates: start: 20200116, end: 20200116
  8. METHYLPREDNISOLON [Concomitant]
     Active Substance: METHYLPREDNISOLONE
     Indication: PREMEDICATION
     Dosage: ONCE BEFORE?INFUSION
     Route: 042
     Dates: start: 20200116, end: 20200116
  9. METHYLPREDNISOLON [Concomitant]
     Active Substance: METHYLPREDNISOLONE
     Dosage: ONCE BEFORE?INFUSION
     Route: 042
     Dates: start: 20200717, end: 20200717
  10. CALMABEN [Concomitant]
     Dosage: ONCE BEFORE?INFUSION
     Route: 048
     Dates: start: 20200717, end: 20200717
  11. METHYLPREDNISOLON [Concomitant]
     Active Substance: METHYLPREDNISOLONE
     Dosage: ONCE BEFORE?INFUSION
     Route: 042
     Dates: start: 20200130, end: 20200130
  12. PARACETAMOL [Concomitant]
     Active Substance: ACETAMINOPHEN
     Route: 048
     Dates: start: 20200717, end: 20200717

REACTIONS (1)
  - COVID-19 [Recovered/Resolved]

NARRATIVE: CASE EVENT DATE: 20201022
